FAERS Safety Report 6147317-0 (Version None)
Quarter: 2009Q2

REPORT INFORMATION
  Report Type: 
  Country: None (occurrence: None)
  Receive Date: 20090408
  Receipt Date: 20090327
  Transmission Date: 20091009
  Serious: Yes (Hospitalization)
  Sender: FDA-Public Use
  Company Number: PHHY2009ES11741

PATIENT
  Age: 70 Year
  Sex: Male

DRUGS (2)
  1. GLEEVEC [Suspect]
     Indication: CHRONIC MYELOID LEUKAEMIA
     Dosage: UNK
     Route: 048
  2. HYDREA [Concomitant]

REACTIONS (3)
  - PERICARDIAL EFFUSION [None]
  - PLEURAL EFFUSION [None]
  - POLYSEROSITIS [None]
